FAERS Safety Report 12491957 (Version 1)
Quarter: 2016Q2

REPORT INFORMATION
  Report Type: Spontaneous
  Country: BE (occurrence: BE)
  Receive Date: 20160623
  Receipt Date: 20160623
  Transmission Date: 20160815
  Serious: Yes (Hospitalization, Other)
  Sender: FDA-Public Use
  Company Number: BE-SCIEGEN PHARMACEUTICALS INC-2016SCILIT00206

PATIENT

DRUGS (11)
  1. LEVOCETIRIZINE DIHYDROCHLORIDE TABLETS [Suspect]
     Active Substance: LEVOCETIRIZINE DIHYDROCHLORIDE
     Dosage: UNK
     Route: 065
     Dates: start: 20150207
  2. RANITIDINE. [Suspect]
     Active Substance: RANITIDINE
     Indication: PRODUCT USED FOR UNKNOWN INDICATION
     Dosage: UNK
     Dates: start: 20150207
  3. CLOBETASOL PROPIONATE. [Suspect]
     Active Substance: CLOBETASOL PROPIONATE
     Indication: PRODUCT USED FOR UNKNOWN INDICATION
     Dosage: UNK
     Route: 065
  4. PALIPERIDONE. [Suspect]
     Active Substance: PALIPERIDONE
     Dosage: 100 MG, UNK
     Route: 065
     Dates: start: 20150115
  5. PARACETAMOL [Suspect]
     Active Substance: ACETAMINOPHEN
     Indication: PRODUCT USED FOR UNKNOWN INDICATION
     Dosage: UNK
     Route: 065
     Dates: start: 20150207
  6. LEVOCETIRIZINE DIHYDROCHLORIDE TABLETS [Suspect]
     Active Substance: LEVOCETIRIZINE DIHYDROCHLORIDE
     Indication: PRODUCT USED FOR UNKNOWN INDICATION
     Dosage: 5 MG AT NIGHT FOR 5 DAYS
     Route: 065
     Dates: start: 20150202
  7. CLORAZEPATE [Suspect]
     Active Substance: CLORAZEPATE DIPOTASSIUM
     Indication: PRODUCT USED FOR UNKNOWN INDICATION
     Dosage: 5 MG, QD
     Route: 065
     Dates: start: 20150115
  8. METHYLPREDNISOLONE. [Suspect]
     Active Substance: METHYLPREDNISOLONE
     Indication: RASH
     Dosage: 32 MG, UNK
     Route: 065
     Dates: start: 20150202, end: 20150205
  9. PALIPERIDONE. [Suspect]
     Active Substance: PALIPERIDONE
     Indication: PRODUCT USED FOR UNKNOWN INDICATION
     Dosage: 150 MG, UNK
     Route: 065
     Dates: start: 20150108
  10. OLANZAPINE. [Suspect]
     Active Substance: OLANZAPINE
     Indication: PRODUCT USED FOR UNKNOWN INDICATION
     Dosage: 10 MG, QD
     Route: 065
     Dates: start: 20150115
  11. MOMETASONE CREAM [Suspect]
     Active Substance: MOMETASONE
     Indication: PRODUCT USED FOR UNKNOWN INDICATION
     Dosage: UNK
     Route: 065
     Dates: start: 20150207

REACTIONS (12)
  - Acute kidney injury [None]
  - Septic shock [None]
  - Rash [Recovering/Resolving]
  - Ocular hyperaemia [Unknown]
  - Type 1 diabetes mellitus [Unknown]
  - Weight decreased [Unknown]
  - Lip haemorrhage [Unknown]
  - Haemodynamic instability [Unknown]
  - Dermatitis exfoliative [Unknown]
  - Toxic epidermal necrolysis [None]
  - Nikolsky^s sign [Unknown]
  - Cytomegalovirus enterocolitis [None]
